FAERS Safety Report 10621405 (Version 2)
Quarter: 2014Q4

REPORT INFORMATION
  Report Type: Report from Study
  Country: FR (occurrence: FR)
  Receive Date: 20141203
  Receipt Date: 20141203
  Transmission Date: 20150529
  Serious: Yes (Hospitalization)
  Sender: FDA-Public Use
  Company Number: FR-BIOGENIDEC-2014BI005746

PATIENT
  Age: 62 Year
  Sex: Male
  Weight: 75 kg

DRUGS (12)
  1. FAMPYRA [Suspect]
     Active Substance: DALFAMPRIDINE
     Indication: MULTIPLE SCLEROSIS
     Route: 048
     Dates: start: 20130911, end: 20131221
  2. XATRAL [Concomitant]
     Active Substance: ALFUZOSIN
     Indication: URINARY TRACT DISORDER
     Route: 048
  3. FORLAX [Concomitant]
     Active Substance: POLYETHYLENE GLYCOL 4000
  4. ROCEPHIN [Concomitant]
     Active Substance: CEFTRIAXONE SODIUM
     Route: 048
     Dates: end: 20131230
  5. COUMADIN [Concomitant]
     Active Substance: WARFARIN SODIUM
     Indication: EMBOLISM
     Route: 048
     Dates: start: 201202
  6. CERIS [Concomitant]
     Active Substance: TROSPIUM CHLORIDE
     Indication: URINARY TRACT DISORDER
     Route: 048
  7. LOVENOX [Concomitant]
     Active Substance: ENOXAPARIN SODIUM
     Route: 058
  8. COPAXONE [Concomitant]
     Active Substance: GLATIRAMER ACETATE
     Indication: MULTIPLE SCLEROSIS
     Route: 058
     Dates: start: 2010
  9. LIORESAL [Concomitant]
     Active Substance: BACLOFEN
     Indication: MUSCLE SPASTICITY
     Route: 048
  10. SOLUPRED [Concomitant]
     Active Substance: PREDNISOLONE
  11. FORLAX [Concomitant]
     Active Substance: POLYETHYLENE GLYCOL 4000
  12. PHYSIOLOGICAL SALT SOLUTION [Concomitant]
     Indication: INCREASED VISCOSITY OF BRONCHIAL SECRETION

REACTIONS (4)
  - Haematuria [Recovered/Resolved]
  - Respiratory distress [Recovered/Resolved]
  - Urinary tract infection [Recovered/Resolved]
  - Pulmonary haemorrhage [Recovered/Resolved]

NARRATIVE: CASE EVENT DATE: 20131217
